FAERS Safety Report 8804460 (Version 1)
Quarter: 2012Q4

REPORT INFORMATION
  Report Type: 
  Country: US (occurrence: US)
  Receive Date: 20120924
  Receipt Date: 20120924
  Transmission Date: 20130627
  Serious: No
  Sender: FDA-Public Use
  Company Number: US-B.I. PHARMACEUTICALS,INC./RIDGEFIELD-2012-BP-22931BP

PATIENT
  Age: 66 Year
  Sex: Female
  Weight: 64 kg

DRUGS (11)
  1. SPIRIVA [Suspect]
     Indication: CHRONIC OBSTRUCTIVE PULMONARY DISEASE
     Dosage: 18 mcg
     Route: 055
     Dates: start: 2007
  2. SPIRIVA [Suspect]
     Route: 048
     Dates: start: 20120918, end: 20120918
  3. VERAPAMIL [Concomitant]
     Indication: FACTOR V DEFICIENCY
     Dosage: 480 mg
     Route: 048
     Dates: start: 2002
  4. SINGULAIR [Concomitant]
     Indication: CHRONIC OBSTRUCTIVE PULMONARY DISEASE
     Dosage: 10 mg
     Route: 048
     Dates: start: 2006
  5. THEOPHYLLINE ER [Concomitant]
     Indication: CHRONIC OBSTRUCTIVE PULMONARY DISEASE
     Dosage: 600 mg
     Route: 048
     Dates: start: 2002
  6. PLAVIX [Concomitant]
     Indication: FACTOR V DEFICIENCY
     Dosage: 75 mg
     Route: 048
     Dates: start: 2006
  7. LIPITOR [Concomitant]
     Indication: BLOOD CHOLESTEROL INCREASED
     Dosage: 10 mg
     Route: 048
     Dates: start: 2010
  8. ASPIRIN [Concomitant]
     Indication: FACTOR V DEFICIENCY
     Dosage: 81 mg
     Route: 048
     Dates: start: 2000
  9. XOPENEX [Concomitant]
     Indication: CHRONIC OBSTRUCTIVE PULMONARY DISEASE
     Route: 055
     Dates: start: 2008
  10. ADVAIR [Concomitant]
     Indication: CHRONIC OBSTRUCTIVE PULMONARY DISEASE
     Route: 055
     Dates: start: 2000
  11. NEXIUM [Concomitant]
     Indication: GASTROOESOPHAGEAL REFLUX DISEASE
     Route: 048
     Dates: start: 2010

REACTIONS (1)
  - Incorrect route of drug administration [Recovered/Resolved]
